FAERS Safety Report 8817143 (Version 1)
Quarter: 2012Q4

REPORT INFORMATION
  Report Type: Spontaneous
  Country: US (occurrence: None)
  Receive Date: 20121003
  Receipt Date: 20121003
  Transmission Date: 20130627
  Serious: Yes (Congenital Anomaly)
  Sender: FDA-Public Use
  Company Number: None

PATIENT
  Age: 90 Year
  Sex: Female

DRUGS (1)
  1. CIPROFLOXACIN HCL 250 MG [Suspect]
     Indication: BLADDER INFECTION
     Route: 048
     Dates: start: 20120917

REACTIONS (6)
  - Dizziness [None]
  - Confusional state [None]
  - Pain [None]
  - Pain in extremity [None]
  - Musculoskeletal pain [None]
  - Arthralgia [None]
